FAERS Safety Report 6862286-3 (Version None)
Quarter: 2010Q3

REPORT INFORMATION
  Report Type: 
  Country: None (occurrence: None)
  Receive Date: 20100721
  Receipt Date: 20100716
  Transmission Date: 20110219
  Serious: Yes (Other)
  Sender: FDA-Public Use
  Company Number: US-BRISTOL-MYERS SQUIBB COMPANY-15197080

PATIENT
  Age: 73 Year
  Sex: Female
  Weight: 80 kg

DRUGS (6)
  1. ERBITUX [Suspect]
     Dates: start: 20100101
  2. KEFLEX [Concomitant]
  3. SIMVASTATIN [Concomitant]
  4. GLIPIZIDE [Concomitant]
  5. ADVAIR DISKUS 100/50 [Concomitant]
  6. SPIRIVA [Concomitant]

REACTIONS (5)
  - ACNE [None]
  - DECREASED APPETITE [None]
  - RASH [None]
  - SUNBURN [None]
  - WEIGHT DECREASED [None]
